FAERS Safety Report 21697729 (Version 1)
Quarter: 2022Q4

REPORT INFORMATION
  Report Type: Report from Study
  Country: US (occurrence: US)
  Receive Date: 20221208
  Receipt Date: 20221208
  Transmission Date: 20230113
  Serious: No
  Sender: FDA-Public Use
  Company Number: US-ABBVIE-4209475

PATIENT
  Sex: Male

DRUGS (2)
  1. HUMIRA [Suspect]
     Active Substance: ADALIMUMAB
     Indication: Psoriatic arthropathy
     Dosage: FORM STRENGTH: 40 MILLIGRAM.
     Route: 058
  2. HUMIRA [Suspect]
     Active Substance: ADALIMUMAB
     Indication: Psoriasis

REACTIONS (6)
  - Skin discolouration [Unknown]
  - Psoriasis [Not Recovered/Not Resolved]
  - Fungal skin infection [Unknown]
  - Therapeutic response shortened [Unknown]
  - Therapeutic product effect decreased [Unknown]
  - Psoriatic arthropathy [Unknown]
